FAERS Safety Report 8475856-6 (Version None)
Quarter: 2012Q2

REPORT INFORMATION
  Report Type: 
  Country: None (occurrence: None)
  Receive Date: 20120628
  Receipt Date: 20120614
  Transmission Date: 20120825
  Serious: No
  Sender: FDA-Public Use
  Company Number: US-B.I. PHARMACEUTICALS,INC./RIDGEFIELD-2012-BP-13688BP

PATIENT
  Sex: Female

DRUGS (4)
  1. SPIRIVA [Suspect]
  2. XOPENEX [Suspect]
     Dosage: 1.26 MG
     Route: 055
     Dates: start: 20120501
  3. XOPENEX HFA [Concomitant]
     Route: 065
  4. XOPENEX [Suspect]
     Indication: ASTHMA
     Dosage: 1.26 MG
     Route: 055
     Dates: start: 20111201, end: 20120301

REACTIONS (1)
  - NERVOUSNESS [None]
